FAERS Safety Report 16823072 (Version 1)
Quarter: 2019Q3

REPORT INFORMATION
  Report Type: Spontaneous
  Country: US (occurrence: US)
  Receive Date: 20190918
  Receipt Date: 20190918
  Transmission Date: 20191005
  Serious: No
  Sender: FDA-Public Use
  Company Number: US-009507513-1909USA005177

PATIENT
  Age: 41 Year
  Sex: Male

DRUGS (4)
  1. CAPECITABINE. [Concomitant]
     Active Substance: CAPECITABINE
     Indication: PITUITARY TUMOUR RECURRENT
  2. LOMUSTINE. [Concomitant]
     Active Substance: LOMUSTINE
     Indication: PITUITARY TUMOUR RECURRENT
  3. BEVACIZUMAB. [Concomitant]
     Active Substance: BEVACIZUMAB
     Indication: PITUITARY TUMOUR RECURRENT
  4. TEMODAR [Suspect]
     Active Substance: TEMOZOLOMIDE
     Indication: PITUITARY TUMOUR RECURRENT
     Route: 048

REACTIONS (1)
  - Off label use [Unknown]
